FAERS Safety Report 11781108 (Version 3)
Quarter: 2017Q3

REPORT INFORMATION
  Report Type: Report from Study
  Country: US (occurrence: US)
  Receive Date: 20151126
  Receipt Date: 20170707
  Transmission Date: 20171127
  Serious: Yes (Hospitalization)
  Sender: FDA-Public Use
  Company Number: US-009507513-1511USA011120

PATIENT
  Age: 22 Month
  Sex: Female
  Weight: 12.6 kg

DRUGS (8)
  1. IOBENGUANE I 131 [Suspect]
     Active Substance: IOBENGUANE I-131
     Indication: NEUROBLASTOMA
     Dosage: 228 MCI, ONCE
     Route: 042
     Dates: start: 20151027, end: 20151027
  2. POTASSIUM IODIDE. [Suspect]
     Active Substance: POTASSIUM IODIDE
     Dosage: 13 MG, QD
     Route: 048
     Dates: start: 20151101, end: 20151110
  3. ZOLINZA [Suspect]
     Active Substance: VORINOSTAT
     Indication: NEUROBLASTOMA
     Dosage: 90 MG, QD
     Route: 048
     Dates: start: 20151025, end: 20151107
  4. POTASSIUM IODIDE. [Suspect]
     Active Substance: POTASSIUM IODIDE
     Dosage: 13 MG, QD
     Route: 048
     Dates: start: 20151115
  5. POLYETHYLENE GLYCOL [Concomitant]
     Active Substance: POLYETHYLENE GLYCOLS
     Indication: CONSTIPATION
     Dosage: 8.5 G DAILY, PRN
     Route: 048
     Dates: end: 20151118
  6. POTASSIUM IODIDE. [Suspect]
     Active Substance: POTASSIUM IODIDE
     Indication: NEUROBLASTOMA
     Dosage: 76 MG, ONCE
     Route: 048
     Dates: start: 20151027, end: 20151027
  7. SULFAMETHOXAZOLE (+) TRIMETHOPRIM [Concomitant]
     Active Substance: SULFAMETHOXAZOLE\TRIMETHOPRIM
     Indication: PROPHYLAXIS
     Dosage: 3.1 ML, BID
     Route: 048
  8. POTASSIUM IODIDE. [Suspect]
     Active Substance: POTASSIUM IODIDE
     Dosage: 13 MG, Q4H
     Route: 048
     Dates: start: 20151027, end: 20151031

REACTIONS (5)
  - Pyrexia [Recovered/Resolved]
  - Vomiting [Recovered/Resolved]
  - Platelet count decreased [Recovered/Resolved]
  - Fatigue [Recovered/Resolved]
  - Enterobacter infection [Recovered/Resolved with Sequelae]

NARRATIVE: CASE EVENT DATE: 20151113
